FAERS Safety Report 18179869 (Version 3)
Quarter: 2021Q4

REPORT INFORMATION
  Report Type: Report from Study
  Country: US (occurrence: US)
  Receive Date: 20200821
  Receipt Date: 20211122
  Transmission Date: 20220303
  Serious: No
  Sender: FDA-Public Use
  Company Number: None

PATIENT
  Sex: Female

DRUGS (1)
  1. COSENTYX [Suspect]
     Active Substance: SECUKINUMAB
     Indication: Product used for unknown indication
     Dosage: UNK
     Route: 065

REACTIONS (6)
  - Immune system disorder [Unknown]
  - Ocular hyperaemia [Unknown]
  - Ear infection [Unknown]
  - Rash [Unknown]
  - Rhinitis [Unknown]
  - Pharyngitis [Unknown]
